FAERS Safety Report 7259587-6 (Version None)
Quarter: 2011Q1

REPORT INFORMATION
  Report Type: 
  Country: None (occurrence: None)
  Receive Date: 20110130
  Receipt Date: 20101103
  Transmission Date: 20110831
  Serious: No
  Sender: FDA-Public Use
  Company Number: PR-ABBOTT-10P-131-0683389-00

PATIENT
  Sex: Female
  Weight: 74.91 kg

DRUGS (3)
  1. LODINE XL [Concomitant]
     Indication: ARTHRALGIA
     Route: 048
  2. ADVIL [Concomitant]
     Indication: ARTHRALGIA
     Route: 048
  3. HUMIRA [Suspect]
     Indication: RHEUMATOID ARTHRITIS
     Route: 058
     Dates: start: 20100901

REACTIONS (6)
  - INJECTION SITE ERYTHEMA [None]
  - INJECTION SITE RASH [None]
  - INJECTION SITE WARMTH [None]
  - DRUG INEFFECTIVE [None]
  - INJECTION SITE SWELLING [None]
  - INJECTION SITE REACTION [None]
